FAERS Safety Report 16377345 (Version 1)
Quarter: 2019Q2

REPORT INFORMATION
  Report Type: Spontaneous
  Country: CA (occurrence: CA)
  Receive Date: 20190531
  Receipt Date: 20190531
  Transmission Date: 20190711
  Serious: Yes (Life-Threatening, Disabling)
  Sender: FDA-Public Use
  Company Number: CA-PFIZER INC-2019229615

PATIENT
  Age: 67 Year
  Sex: Male
  Weight: 105 kg

DRUGS (2)
  1. PREGABALIN. [Suspect]
     Active Substance: PREGABALIN
     Indication: CANCER PAIN
     Dosage: 2 DF, UNK
     Route: 048
  2. INSULIN [Concomitant]
     Active Substance: INSULIN NOS
     Dosage: UNK

REACTIONS (14)
  - Discomfort [Unknown]
  - Mental disorder [Unknown]
  - Quality of life decreased [Unknown]
  - Sleep disorder [Unknown]
  - Anger [Unknown]
  - Constipation [Unknown]
  - Suicidal behaviour [Unknown]
  - Dry mouth [Unknown]
  - Confusional state [Unknown]
  - Pain [Unknown]
  - Off label use [Unknown]
  - Fibromyalgia [Unknown]
  - Headache [Unknown]
  - Product use in unapproved indication [Unknown]
